FAERS Safety Report 23238210 (Version 3)
Quarter: 2024Q3

REPORT INFORMATION
  Report Type: Spontaneous
  Country: US (occurrence: US)
  Receive Date: 20231129
  Receipt Date: 20240912
  Transmission Date: 20241017
  Serious: No
  Sender: SANOFI AVENTIS
  Company Number: US-SA-SAC20231121000146

PATIENT
  Age: 36 Year
  Sex: Female

DRUGS (3)
  1. DUPIXENT [Suspect]
     Active Substance: DUPILUMAB
     Indication: Asthma
     Dosage: 400 MG, 1X
     Route: 058
     Dates: start: 20231012, end: 20231012
  2. DUPIXENT [Suspect]
     Active Substance: DUPILUMAB
     Indication: Multiple allergies
     Dosage: 200 MG, QOW
     Route: 058
     Dates: start: 20231027
  3. DUPIXENT [Suspect]
     Active Substance: DUPILUMAB
     Indication: Urticaria

REACTIONS (11)
  - Injection site urticaria [Recovered/Resolved]
  - Injection site rash [Recovered/Resolved]
  - Injection site pruritus [Recovered/Resolved]
  - Injection site erythema [Recovered/Resolved]
  - Asthma [Recovered/Resolved]
  - Wheezing [Recovered/Resolved]
  - Cough [Recovered/Resolved]
  - Dyspnoea [Recovered/Resolved]
  - Chest discomfort [Recovered/Resolved]
  - Product use in unapproved indication [Unknown]
  - Product dose omission in error [Unknown]

NARRATIVE: CASE EVENT DATE: 20231012
